FAERS Safety Report 9115076 (Version 1)
Quarter: 2013Q1

REPORT INFORMATION
  Report Type: Spontaneous
  Country: US (occurrence: US)
  Receive Date: 20130225
  Receipt Date: 20130225
  Transmission Date: 20140127
  Serious: No
  Sender: FDA-Public Use
  Company Number: US-COVIDIEN/TYCO HEALTHCARE/MALLINCKRODT-T201204171

PATIENT
  Age: 9 None
  Sex: Male

DRUGS (1)
  1. GABLOFEN [Suspect]
     Indication: MUSCLE SPASTICITY
     Dosage: UNK
     Dates: start: 20121106

REACTIONS (4)
  - Clonus [Unknown]
  - Muscle tightness [Unknown]
  - Drug withdrawal syndrome [Unknown]
  - Drug effect decreased [Unknown]
